FAERS Safety Report 5579181-2 (Version None)
Quarter: 2008Q1

REPORT INFORMATION
  Report Type: 
  Country: None (occurrence: None)
  Receive Date: 20080102
  Receipt Date: 20071228
  Transmission Date: 20080703
  Serious: Yes (Death, Disabling)
  Sender: FDA-Public Use
  Company Number: B0466362A

PATIENT
  Age: 9 Year
  Sex: Female
  Weight: 36.3 kg

DRUGS (13)
  1. ALKERAN [Suspect]
     Indication: ALLOGENIC BONE MARROW TRANSPLANTATION THERAPY
     Dosage: 70MG PER DAY
     Route: 042
     Dates: start: 20051210, end: 20051212
  2. PREDONINE [Suspect]
     Indication: DRUG USE FOR UNKNOWN INDICATION
     Dosage: 60MG PER DAY
     Route: 065
     Dates: start: 20060116, end: 20060329
  3. GRAN [Concomitant]
     Dates: start: 20051220, end: 20060103
  4. TACROLIMUS HYDRATE [Concomitant]
     Dosage: .7MG PER DAY
     Route: 065
     Dates: start: 20051214, end: 20060113
  5. SOLU-MEDROL [Concomitant]
     Dosage: 500MG PER DAY
     Route: 042
     Dates: start: 20060113, end: 20060115
  6. CELLCEPT [Concomitant]
     Dosage: 1000MG PER DAY
     Route: 048
     Dates: start: 20060116, end: 20060329
  7. FLUMARIN [Concomitant]
     Dosage: 3G PER DAY
     Route: 042
     Dates: start: 20051213, end: 20051219
  8. MAXIPIME [Concomitant]
     Dosage: 2G PER DAY
     Route: 042
     Dates: start: 20051219, end: 20051222
  9. MEROPEN [Concomitant]
     Dosage: 1G PER DAY
     Route: 042
     Dates: start: 20051222, end: 20051228
  10. MINOMYCIN [Concomitant]
     Dosage: 100MG PER DAY
     Route: 042
     Dates: start: 20051222, end: 20051228
  11. TARGOCID [Concomitant]
     Dosage: 350MG PER DAY
     Route: 042
     Dates: start: 20051228, end: 20051231
  12. SULPERAZON [Concomitant]
     Dosage: 1G PER DAY
     Route: 042
     Dates: start: 20051231, end: 20060127
  13. PANSPORIN [Concomitant]
     Dosage: 3G PER DAY
     Dates: start: 20060131, end: 20060203

REACTIONS (4)
  - MULTI-ORGAN FAILURE [None]
  - ORAL PAIN [None]
  - PNEUMONIA [None]
  - STOMATITIS [None]
